FAERS Safety Report 10358583 (Version 3)
Quarter: 2014Q3

REPORT INFORMATION
  Report Type: Report from Study
  Country: CN (occurrence: CN)
  Receive Date: 20140803
  Receipt Date: 20140815
  Transmission Date: 20150326
  Serious: Yes (Hospitalization)
  Sender: FDA-Public Use
  Company Number: PHHO2014CN010546

PATIENT
  Age: 51 Year
  Sex: Female
  Weight: 50 kg

DRUGS (2)
  1. ANTIBIOTICS [Concomitant]
     Active Substance: UNSPECIFIED INGREDIENT
     Indication: LUNG INFECTION
     Dosage: UNK
     Dates: start: 20140807
  2. LDK378 [Suspect]
     Active Substance: CERITINIB
     Indication: NON-SMALL CELL LUNG CANCER
     Dosage: 750 MG, UNK
     Route: 048
     Dates: start: 20140724, end: 20140725

REACTIONS (2)
  - Vomiting [Recovering/Resolving]
  - Supraventricular tachycardia [Recovering/Resolving]

NARRATIVE: CASE EVENT DATE: 20140725
